FAERS Safety Report 8144275-4 (Version None)
Quarter: 2012Q1

REPORT INFORMATION
  Report Type: 
  Country: None (occurrence: None)
  Receive Date: 20120217
  Receipt Date: 20120216
  Transmission Date: 20120608
  Serious: Yes (Other)
  Sender: FDA-Public Use
  Company Number: CA-JNJFOC-20120113663

PATIENT
  Age: 5 Year
  Sex: Male
  Weight: 27.22 kg

DRUGS (3)
  1. CONCENTRATED TYLENOL INFANT DROPS [Suspect]
     Indication: PROPHYLAXIS
     Dosage: STARTED APPROXIMATELY AT 2 MONTHS OF AGE UNTIL 2007.
     Route: 048
     Dates: end: 20070101
  2. PREVNAR VACCINE [Suspect]
     Indication: IMMUNISATION
     Route: 065
  3. CONCENTRATED TYLENOL INFANT DROPS [Suspect]
     Indication: PYREXIA
     Dosage: STARTED APPROXIMATELY AT 2 MONTHS OF AGE UNTIL 2007.
     Route: 048
     Dates: end: 20070101

REACTIONS (1)
  - AUTISM [None]
